FAERS Safety Report 14607894 (Version 2)
Quarter: 2018Q1

REPORT INFORMATION
  Report Type: Report from Study
  Country: US (occurrence: US)
  Receive Date: 20180307
  Receipt Date: 20180329
  Transmission Date: 20180509
  Serious: No
  Sender: FDA-Public Use
  Company Number: US-BAYER-2018-044087

PATIENT
  Age: 25 Year
  Sex: Female

DRUGS (1)
  1. SKYLA [Suspect]
     Active Substance: LEVONORGESTREL
     Indication: CONTRACEPTION
     Dosage: 14 MCG/24HR, CONT
     Route: 015
     Dates: start: 20171121, end: 20180216

REACTIONS (2)
  - Unintentional medical device removal [None]
  - Complication of device removal [None]

NARRATIVE: CASE EVENT DATE: 20180216
